FAERS Safety Report 21885587 (Version 1)
Quarter: 2023Q1

REPORT INFORMATION
  Report Type: Spontaneous
  Country: BR (occurrence: BR)
  Receive Date: 20230119
  Receipt Date: 20230119
  Transmission Date: 20230418
  Serious: Yes (Other)
  Sender: FDA-Public Use
  Company Number: ALC2023BR000571

PATIENT
  Age: 43 Year
  Sex: Female

DRUGS (1)
  1. SIMBRINZA [Suspect]
     Active Substance: BRIMONIDINE TARTRATE\BRINZOLAMIDE
     Indication: Product used for unknown indication
     Dosage: 8 ML
     Route: 065

REACTIONS (7)
  - Apnoea [Unknown]
  - Syncope [Unknown]
  - Narcolepsy [Unknown]
  - Confusional state [Recovering/Resolving]
  - Chest pain [Unknown]
  - Somnolence [Unknown]
  - Blood pressure decreased [Unknown]
